FAERS Safety Report 5301924-3 (Version None)
Quarter: 2007Q2

REPORT INFORMATION
  Report Type: 
  Country: None (occurrence: None)
  Receive Date: 20070416
  Receipt Date: 20070416
  Transmission Date: 20071010
  Serious: Yes (Hospitalization)
  Sender: FDA-Public Use
  Company Number: None

PATIENT
  Age: 65 Year
  Sex: Female
  Weight: 78.4723 kg

DRUGS (17)
  1. GEMCITABINE HCL [Suspect]
     Indication: LUNG CANCER METASTATIC
     Dosage: 1545 MG Q 2 WEEKS
     Dates: start: 20061004, end: 20061004
  2. BEVACIZUMAB [Suspect]
     Indication: LUNG CANCER METASTATIC
     Dosage: 790 MG Q 2 WEEKS
     Dates: start: 20061226, end: 20061226
  3. PREMETREXED [Concomitant]
  4. VITAMIN E [Concomitant]
  5. ADVAIR DISKUS 100/50 [Concomitant]
  6. TAGAMET [Concomitant]
  7. PREMARIN [Concomitant]
  8. MS CONTIN [Concomitant]
  9. MSIR [Concomitant]
  10. FLAGYL [Concomitant]
  11. MOXIFLOXACIN HCL [Concomitant]
  12. VITAMINS [Concomitant]
  13. AMBIEN [Concomitant]
  14. FOLIC ACID [Concomitant]
  15. SENNA [Concomitant]
  16. XANAX [Concomitant]
  17. OXYGEN [Concomitant]

REACTIONS (4)
  - BACK PAIN [None]
  - METASTASES TO SPINE [None]
  - NO THERAPEUTIC RESPONSE [None]
  - URINARY TRACT INFECTION [None]
